FAERS Safety Report 9347107 (Version 4)
Quarter: 2013Q3

REPORT INFORMATION
  Report Type: Report from Study
  Country: JP (occurrence: JP)
  Receive Date: 20130613
  Receipt Date: 20130815
  Transmission Date: 20140515
  Serious: Yes (Life-Threatening)
  Sender: FDA-Public Use
  Company Number: JP-GLAXOSMITHKLINE-B0898362A

PATIENT
  Age: 59 Year
  Sex: Male
  Weight: 82 kg

DRUGS (8)
  1. VOTRIENT [Suspect]
     Indication: SYNOVIAL SARCOMA
     Dosage: 800MG PER DAY
     Route: 048
     Dates: start: 20121225, end: 20130305
  2. VOTRIENT [Suspect]
     Indication: SYNOVIAL SARCOMA
     Dosage: 600MG PER DAY
     Route: 048
     Dates: start: 20130306, end: 20130504
  3. VOTRIENT [Suspect]
     Indication: SYNOVIAL SARCOMA
     Dosage: 400MG PER DAY
     Route: 048
     Dates: start: 20130524, end: 20130526
  4. BIO-THREE [Concomitant]
     Route: 048
  5. LOPEMIN [Concomitant]
     Route: 048
  6. TANNALBIN [Concomitant]
     Route: 048
  7. MICARDIS [Concomitant]
     Route: 048
  8. CRAVIT [Concomitant]
     Indication: RESPIRATORY TRACT INFLAMMATION
     Route: 048

REACTIONS (6)
  - Renal impairment [Not Recovered/Not Resolved]
  - Diarrhoea [Recovering/Resolving]
  - Vomiting [Recovering/Resolving]
  - Hepatic function abnormal [Recovered/Resolved]
  - Hypertension [Recovered/Resolved]
  - Upper respiratory tract inflammation [Recovered/Resolved]
